FAERS Safety Report 8383164-7 (Version None)
Quarter: 2012Q2

REPORT INFORMATION
  Report Type: 
  Country: None (occurrence: None)
  Receive Date: 20120524
  Receipt Date: 20120518
  Transmission Date: 20120825
  Serious: Yes (Other)
  Sender: FDA-Public Use
  Company Number: US-ASTELLAS-2012US004866

PATIENT
  Sex: Female
  Weight: 84 kg

DRUGS (11)
  1. NORVASC [Concomitant]
     Indication: CAPILLARY DISORDER
     Dosage: 10 MG, UID/QD
     Route: 048
  2. ASPIRIN [Concomitant]
     Indication: PLATELET AGGREGATION INHIBITION
     Dosage: 81 MG, UID/QD
     Route: 048
  3. MULTI-VITAMIN [Concomitant]
     Indication: VITAMIN SUPPLEMENTATION
     Dosage: UID/QD
     Route: 048
  4. GLYBURIDE [Concomitant]
     Indication: PRODUCT USED FOR UNKNOWN INDICATION
     Dosage: 2.5 MG, UID/QD
     Route: 048
  5. PREDNISONE [Concomitant]
     Indication: HEART TRANSPLANT
     Dosage: 5 MG, UID/QD
     Route: 048
  6. AMLODIPINE BESYLATE [Concomitant]
     Indication: BLOOD PRESSURE
     Dosage: 10 MG, UID/QD
     Route: 048
  7. CELLCEPT [Concomitant]
     Indication: RENAL TRANSPLANT
  8. SIMVASTATIN [Concomitant]
     Indication: BLOOD CHOLESTEROL
     Dosage: 20 MG, UID/QD
     Route: 048
  9. PROGRAF [Suspect]
     Indication: HEART TRANSPLANT
     Dosage: 4 MG, BID
     Route: 048
     Dates: start: 20070717
  10. PREDNISONE [Concomitant]
     Indication: RENAL TRANSPLANT
  11. CELLCEPT [Concomitant]
     Indication: HEART TRANSPLANT
     Dosage: 250 MG, BID
     Route: 048

REACTIONS (1)
  - DIALYSIS [None]
